FAERS Safety Report 23162532 (Version 3)
Quarter: 2023Q4

REPORT INFORMATION
  Report Type: Spontaneous
  Country: US (occurrence: US)
  Receive Date: 20231109
  Receipt Date: 20231228
  Transmission Date: 20240109
  Serious: No
  Sender: FDA-Public Use
  Company Number: US-BRISTOL-MYERS SQUIBB COMPANY-2023-160362

PATIENT
  Age: 66 Year
  Sex: Female
  Weight: 68.04 kg

DRUGS (6)
  1. POMALYST [Suspect]
     Active Substance: POMALIDOMIDE
     Indication: Plasma cell myeloma
     Route: 048
     Dates: start: 20230918
  2. NINLARO [Suspect]
     Active Substance: IXAZOMIB CITRATE
     Indication: Plasma cell myeloma
     Route: 048
     Dates: start: 20230918
  3. NORCO [Concomitant]
     Active Substance: ACETAMINOPHEN\HYDROCODONE BITARTRATE
     Indication: Product used for unknown indication
  4. GABAPENTIN [Concomitant]
     Active Substance: GABAPENTIN
     Indication: Product used for unknown indication
  5. ELIQUIS [Concomitant]
     Active Substance: APIXABAN
     Indication: Product used for unknown indication
  6. NOVAVAX COVID-19 VACCINE [Concomitant]
     Indication: COVID-19 immunisation

REACTIONS (10)
  - Nausea [Unknown]
  - Decreased appetite [Unknown]
  - Taste disorder [Unknown]
  - Insomnia [Unknown]
  - Diarrhoea [Unknown]
  - Lethargy [Recovering/Resolving]
  - Vomiting [Recovering/Resolving]
  - Alopecia [Recovering/Resolving]
  - Dysgeusia [Not Recovered/Not Resolved]
  - Weight decreased [Not Recovered/Not Resolved]

NARRATIVE: CASE EVENT DATE: 20230101
